FAERS Safety Report 18925495 (Version 2)
Quarter: 2021Q1

REPORT INFORMATION
  Report Type: Report from Study
  Country: DE (occurrence: DE)
  Receive Date: 20210223
  Receipt Date: 20210309
  Transmission Date: 20210420
  Serious: Yes (Hospitalization)
  Sender: FDA-Public Use
  Company Number: DE-JNJFOC-20210231071

PATIENT
  Age: 67 Year
  Sex: Male

DRUGS (2)
  1. NATRIUMCHLORIDE [Concomitant]
     Active Substance: SODIUM CHLORIDE
     Route: 065
  2. DARZALEX [Suspect]
     Active Substance: DARATUMUMAB
     Indication: PLASMA CELL MYELOMA
     Dosage: DAY 2, 9, 16, 22
     Route: 058
     Dates: start: 20210118

REACTIONS (1)
  - Acute kidney injury [Recovered/Resolved]

NARRATIVE: CASE EVENT DATE: 20210129
